FAERS Safety Report 6190144-9 (Version None)
Quarter: 2009Q2

REPORT INFORMATION
  Report Type: 
  Country: None (occurrence: None)
  Receive Date: 20090514
  Receipt Date: 20090504
  Transmission Date: 20091009
  Serious: Yes (Hospitalization)
  Sender: FDA-Public Use
  Company Number: IT-ELI_LILLY_AND_COMPANY-IT200905000537

PATIENT
  Age: 74 Year
  Sex: Female

DRUGS (5)
  1. FORTEO [Suspect]
     Indication: OSTEOPOROSIS
     Dosage: UNK, UNK
     Dates: start: 20080401, end: 20090101
  2. PRISMA [Concomitant]
     Dosage: 50 MG, UNK
  3. DOBETIN [Concomitant]
  4. TAVOR [Concomitant]
  5. ORUDIS [Concomitant]

REACTIONS (2)
  - HAEMORRHOIDS [None]
  - MYALGIA [None]
